FAERS Safety Report 25982286 (Version 1)
Quarter: 2025Q4

REPORT INFORMATION
  Report Type: Spontaneous
  Country: GB (occurrence: GB)
  Receive Date: 20251031
  Receipt Date: 20251031
  Transmission Date: 20260118
  Serious: Yes (Other)
  Sender: CSL BEHRING
  Company Number: GB-BEH-2025223600

PATIENT
  Age: 36 Year
  Sex: Female

DRUGS (1)
  1. HUMAN IMMUNOGLOBULIN G [Suspect]
     Active Substance: HUMAN IMMUNOGLOBULIN G
     Indication: Neonatal alloimmune thrombocytopenia
     Dosage: UNK
     Route: 042

REACTIONS (4)
  - Abortion spontaneous [Unknown]
  - Chronic villitis of unknown etiology [Unknown]
  - Maternal exposure during pregnancy [Unknown]
  - Off label use [Unknown]
